FAERS Safety Report 16445354 (Version 1)
Quarter: 2019Q2

REPORT INFORMATION
  Report Type: Spontaneous
  Country: RU (occurrence: RU)
  Receive Date: 20190618
  Receipt Date: 20190618
  Transmission Date: 20190711
  Serious: Yes (Other)
  Sender: FDA-Public Use
  Company Number: RU-SA-2019SA159041

PATIENT
  Age: 70 Year
  Sex: Female

DRUGS (6)
  1. TOUJEO [Suspect]
     Active Substance: INSULIN GLARGINE
     Indication: TYPE 2 DIABETES MELLITUS
     Dosage: 25 IU, QD
     Route: 058
     Dates: start: 20190607, end: 20190609
  2. LANTUS SOLOSTAR [Suspect]
     Active Substance: INSULIN GLARGINE
     Dosage: 50 IU, QD, IN THE EVENING, THE PATIENT AGAIN INJECTED INSULIN LANTUS IN A DOSE OF 50 IU
     Route: 058
  3. RINSULIN R [Concomitant]
     Dosage: 10 IU, TID
     Route: 058
     Dates: start: 20190609
  4. LANTUS SOLOSTAR [Suspect]
     Active Substance: INSULIN GLARGINE
     Indication: TYPE 2 DIABETES MELLITUS
     Dosage: 50 IU, QD
     Route: 058
  5. RINSULIN R [Concomitant]
     Dosage: 13-15 IU, 3 TIMES A DAY
     Route: 058
     Dates: start: 20190607, end: 20190609
  6. RINSULIN R [Concomitant]
     Indication: TYPE 2 DIABETES MELLITUS
     Dosage: 10 IU, TID
     Route: 058

REACTIONS (8)
  - Hyperglycaemia [Recovered/Resolved]
  - Intentional product use issue [Recovered/Resolved]
  - Abdominal pain upper [Recovered/Resolved]
  - Dizziness [Recovered/Resolved]
  - Intentional product misuse [Recovered/Resolved]
  - Arrhythmia [Recovered/Resolved]
  - Nausea [Recovered/Resolved]
  - Diarrhoea [Recovered/Resolved]

NARRATIVE: CASE EVENT DATE: 20190607
